FAERS Safety Report 16494317 (Version 1)
Quarter: 2019Q2

REPORT INFORMATION
  Report Type: Spontaneous
  Country: FR (occurrence: FR)
  Receive Date: 20190628
  Receipt Date: 20190628
  Transmission Date: 20190711
  Serious: Yes (Life-Threatening, Hospitalization, Other)
  Sender: FDA-Public Use
  Company Number: FR-PFIZER INC-2572794

PATIENT
  Age: 51 Year
  Sex: Female
  Weight: 100 kg

DRUGS (15)
  1. PACLITAXEL KABI [Suspect]
     Active Substance: PACLITAXEL
     Indication: CHEMOTHERAPY
     Dosage: 162 MG, CYCLIC (DOSE ALSO REPORTED AS 23.1429 MG, 1 IN 4 WEEKS)
     Dates: start: 20140701, end: 20140722
  2. TANGANIL /00129601/ [Concomitant]
     Dosage: UNK
  3. TRIVASTAL /00397201/ [Concomitant]
     Active Substance: PIRIBEDIL
     Dosage: UNK
  4. PANTOPRAZOLE [Concomitant]
     Active Substance: PANTOPRAZOLE
     Dosage: UNK
  5. DEPAMIDE [Concomitant]
     Active Substance: VALPROMIDE
     Dosage: UNK
  6. LOVENOX [Concomitant]
     Active Substance: ENOXAPARIN SODIUM
     Dosage: UNK
  7. BROMAZEPAM [Concomitant]
     Active Substance: BROMAZEPAM
     Dosage: UNK
  8. KARDEGIC [Concomitant]
     Active Substance: ASPIRIN DL-LYSINE
     Dosage: UNK
  9. MIANSERINE [Concomitant]
     Active Substance: MIANSERIN HYDROCHLORIDE
     Dosage: UNK
  10. CARBOPLATIN. [Suspect]
     Active Substance: CARBOPLATIN
     Indication: CHEMOTHERAPY
     Dosage: 495 MG, CYCLIC (DOSE ALSO REPORTED AS 17.6786 MG, INTRAVENOUS, 1 IN 4 WEEKS)
     Route: 042
     Dates: start: 20140701, end: 20140722
  11. DIPIPERON [Concomitant]
     Active Substance: PIPAMPERONE
     Dosage: UNK
  12. BACLOFEN. [Concomitant]
     Active Substance: BACLOFEN
     Dosage: UNK
  13. CERIS [Concomitant]
     Active Substance: TROSPIUM CHLORIDE
     Dosage: UNK
  14. OXYBUTIN [Concomitant]
     Active Substance: OXYBUTYNIN
     Dosage: UNK
  15. RISPERIDONE. [Concomitant]
     Active Substance: RISPERIDONE
     Dosage: UNK

REACTIONS (8)
  - Inflammation [Not Recovered/Not Resolved]
  - Anaemia [Unknown]
  - Fall [Unknown]
  - Renal failure [Unknown]
  - Pyelonephritis acute [Unknown]
  - Neuropathy peripheral [Not Recovered/Not Resolved]
  - General physical health deterioration [Unknown]
  - Deep vein thrombosis [Unknown]

NARRATIVE: CASE EVENT DATE: 20140813
